FAERS Safety Report 4988351-3 (Version None)
Quarter: 2006Q2

REPORT INFORMATION
  Report Type: 
  Country: None (occurrence: None)
  Receive Date: 20060424
  Receipt Date: 20060411
  Transmission Date: 20061013
  Serious: Yes (Hospitalization)
  Sender: FDA-Public Use
  Company Number: HQWYE793712APR06

PATIENT
  Age: 53 Year
  Sex: Male
  Weight: 72.64 kg

DRUGS (1)
  1. CYCLOSPORINE [Suspect]
     Indication: PROPHYLAXIS AGAINST TRANSPLANT REJECTION
     Dosage: 325 MG 1X PER 12 HR, ORAL
     Route: 048
     Dates: start: 20060330

REACTIONS (2)
  - COMPLICATIONS OF TRANSPLANT SURGERY [None]
  - HYPERTENSIVE CRISIS [None]
